FAERS Safety Report 8361045-2 (Version None)
Quarter: 2012Q2

REPORT INFORMATION
  Report Type: 
  Country: None (occurrence: None)
  Receive Date: 20120515
  Receipt Date: 20120507
  Transmission Date: 20120825
  Serious: Yes (Hospitalization, Other)
  Sender: FDA-Public Use
  Company Number: US-ASTRAZENECA-2011SE77019

PATIENT
  Age: 74 Year
  Sex: Female

DRUGS (1)
  1. NEXIUM [Suspect]
     Route: 048

REACTIONS (9)
  - PITUITARY TUMOUR [None]
  - PULMONARY EMBOLISM [None]
  - APHAGIA [None]
  - CARDIOMEGALY [None]
  - DRUG INEFFECTIVE [None]
  - HYPOTHALAMO-PITUITARY DISORDER [None]
  - DIABETES MELLITUS [None]
  - INTENTIONAL DRUG MISUSE [None]
  - CARDIAC FAILURE CONGESTIVE [None]
